FAERS Safety Report 23625604 (Version 1)
Quarter: 2024Q1

REPORT INFORMATION
  Report Type: Report from Study
  Country: BR (occurrence: BR)
  Receive Date: 20240313
  Receipt Date: 20240313
  Transmission Date: 20240410
  Serious: Yes (Other)
  Sender: FDA-Public Use
  Company Number: BR-CELLTRION INC.-2024BR005722

PATIENT

DRUGS (5)
  1. INFLIXIMAB [Suspect]
     Active Substance: INFLIXIMAB
     Indication: Crohn^s disease
     Dosage: 3 AMPOULES EVERY 2 MONTHS
     Route: 042
     Dates: start: 20221003
  2. INFLIXIMAB [Suspect]
     Active Substance: INFLIXIMAB
     Dosage: 3 AMPOULES EVERY 2 MONTHS
     Route: 042
     Dates: start: 20240109
  3. AZATHIOPRINE [Concomitant]
     Active Substance: AZATHIOPRINE
     Indication: Crohn^s disease
     Dosage: 2 PILLS A DAY
     Route: 048
  4. LOSARTAN [Concomitant]
     Active Substance: LOSARTAN
     Indication: Hypertension
     Dosage: 5/100, 1 PILL A DAY
     Route: 048
  5. METFORMIN [Concomitant]
     Active Substance: METFORMIN HYDROCHLORIDE
     Indication: Diabetes mellitus management
     Dosage: 2 PILL A DAY
     Route: 048

REACTIONS (5)
  - Crohn^s disease [Recovering/Resolving]
  - Wound secretion [Recovering/Resolving]
  - Wound [Recovering/Resolving]
  - Haemorrhage [Recovering/Resolving]
  - Drug ineffective [Recovering/Resolving]
